FAERS Safety Report 9163467 (Version 1)
Quarter: 2012Q4

REPORT INFORMATION
  Report Type: 
  Country: US (occurrence: US)
  Receive Date: 20121210
  Receipt Date: 20121210
  Transmission Date: 20130627
  Serious: Yes (Hospitalization, Other)
  Sender: FDA-Public Use
  Company Number: US-RB-047447-12

PATIENT
  Sex: Female

DRUGS (1)
  1. SUBOXONE UNSPECIFIED [Suspect]
     Indication: PAIN
     Dosage: Dosing details unknown
     Route: 060

REACTIONS (2)
  - Uterine disorder [Unknown]
  - Off label use [Recovered/Resolved]
